FAERS Safety Report 12168387 (Version 2)
Quarter: 2016Q1

REPORT INFORMATION
  Report Type: Spontaneous
  Country: KR (occurrence: KR)
  Receive Date: 20160310
  Receipt Date: 20160316
  Transmission Date: 20160526
  Serious: Yes (Other)
  Sender: FDA-Public Use
  Company Number: PHHY2015KR174499

PATIENT
  Age: 30 Year
  Sex: Female
  Weight: 86 kg

DRUGS (2)
  1. AFINITOR [Suspect]
     Active Substance: EVEROLIMUS
     Indication: ANGIOMYOLIPOMA
     Dosage: 10 MG, QD
     Route: 065
     Dates: start: 20140122
  2. AFINITOR [Suspect]
     Active Substance: EVEROLIMUS
     Dosage: 7.5 MG, QD
     Route: 065
     Dates: start: 20140730

REACTIONS (2)
  - Weight decreased [Unknown]
  - Lymphangioleiomyomatosis [Unknown]
